FAERS Safety Report 9658928 (Version 1)
Quarter: 2013Q4

REPORT INFORMATION
  Report Type: Spontaneous
  Country: US (occurrence: US)
  Receive Date: 20131031
  Receipt Date: 20131031
  Transmission Date: 20140711
  Serious: No
  Sender: FDA-Public Use
  Company Number: US-B.I. PHARMACEUTICALS,INC./RIDGEFIELD-2013-BI-33731BP

PATIENT
  Age: 53 Year
  Sex: Female
  Weight: 68 kg

DRUGS (1)
  1. PRADAXA [Suspect]
     Indication: POLYCYTHAEMIA
     Dosage: 300 MG
     Route: 048
     Dates: start: 201308

REACTIONS (3)
  - Contusion [Not Recovered/Not Resolved]
  - Gingival bleeding [Recovered/Resolved]
  - Off label use [Not Recovered/Not Resolved]
